FAERS Safety Report 7338375-6 (Version None)
Quarter: 2011Q1

REPORT INFORMATION
  Report Type: 
  Country: None (occurrence: None)
  Receive Date: 20110224
  Receipt Date: 20110208
  Transmission Date: 20110831
  Serious: Yes (Hospitalization, Other)
  Sender: FDA-Public Use
  Company Number: CL-292-2011

PATIENT
  Age: 74 Year
  Sex: Male
  Weight: 38.5557 kg

DRUGS (11)
  1. CANDESARTAN CILEXETIL [Concomitant]
  2. METRONIDAZOLE [Suspect]
     Dosage: 500MG, INTRAVENOUS
     Route: 042
     Dates: start: 20110125, end: 20110125
  3. CLARITHROMYCIN [Concomitant]
  4. ISOSORBIDE MONONITRATE [Concomitant]
  5. SERTRALINE HYDROCHLORIDE [Suspect]
     Indication: DEPRESSION
     Dosage: ORAL USE
     Route: 048
     Dates: start: 20101201, end: 20110125
  6. ASPIRIN [Concomitant]
  7. NICORANDIL [Concomitant]
  8. BISOPROLOL FUMARATE [Concomitant]
  9. FELODIPINE [Concomitant]
  10. MEROPENEM [Suspect]
     Dosage: 500MG; INTRAVENOUS
     Route: 042
  11. ATORVASTATIN CALCIUM [Concomitant]

REACTIONS (11)
  - MULTI-ORGAN FAILURE [None]
  - INTERNATIONAL NORMALISED RATIO INCREASED [None]
  - RENAL FAILURE ACUTE [None]
  - GENERAL PHYSICAL HEALTH DETERIORATION [None]
  - HEPATOMEGALY [None]
  - SEPSIS [None]
  - DYSPNOEA [None]
  - CARDIAC FAILURE [None]
  - ACUTE HEPATIC FAILURE [None]
  - PAIN [None]
  - RESPIRATORY FAILURE [None]
